FAERS Safety Report 10354329 (Version 1)
Quarter: 2014Q3

REPORT INFORMATION
  Report Type: Spontaneous
  Country: JP (occurrence: JP)
  Receive Date: 20140731
  Receipt Date: 20140731
  Transmission Date: 20150326
  Serious: Yes (Other)
  Sender: FDA-Public Use
  Company Number: JP-ASTELLAS-2014JP015868

PATIENT
  Age: 14 Year
  Sex: Female

DRUGS (2)
  1. TRANILAST [Concomitant]
     Active Substance: TRANILAST
     Indication: SKIN STRIAE
     Route: 048
  2. PROTOPIC [Suspect]
     Active Substance: TACROLIMUS
     Indication: SKIN STRIAE
     Dosage: UNK UNK, UNKNOWN FREQ.
     Route: 061

REACTIONS (2)
  - Skin striae [Unknown]
  - Drug ineffective for unapproved indication [Unknown]
